FAERS Safety Report 11436470 (Version 1)
Quarter: 2015Q3

REPORT INFORMATION
  Report Type: Spontaneous
  Country: US (occurrence: US)
  Receive Date: 20150821
  Receipt Date: 20150821
  Transmission Date: 20151125
  Serious: No
  Sender: FDA-Public Use
  Company Number: US-ELI_LILLY_AND_COMPANY-US201405009850

PATIENT
  Sex: Male

DRUGS (4)
  1. LIPITOR [Concomitant]
     Active Substance: ATORVASTATIN CALCIUM
  2. DILTIAZEM [Concomitant]
     Active Substance: DILTIAZEM
  3. HUMULIN N [Suspect]
     Active Substance: INSULIN HUMAN
     Indication: TYPE 1 DIABETES MELLITUS
     Dosage: 30 U, BID
     Route: 065
     Dates: start: 1973
  4. HYZAAR [Concomitant]
     Active Substance: HYDROCHLOROTHIAZIDE\LOSARTAN POTASSIUM

REACTIONS (4)
  - Blood glucose decreased [Unknown]
  - Drug ineffective [Unknown]
  - Blood cholesterol increased [Unknown]
  - Hypertension [Unknown]
